FAERS Safety Report 7941294-5 (Version None)
Quarter: 2011Q4

REPORT INFORMATION
  Report Type: 
  Country: None (occurrence: None)
  Receive Date: 20111128
  Receipt Date: 20111117
  Transmission Date: 20120403
  Serious: Yes (Hospitalization)
  Sender: FDA-Public Use
  Company Number: FR-B.I. PHARMACEUTICALS,INC./RIDGEFIELD-2011-FF-01064FF

PATIENT
  Sex: Female
  Weight: 73 kg

DRUGS (3)
  1. PRADAXA [Suspect]
     Indication: KNEE ARTHROPLASTY
     Dosage: 220 MG
     Route: 048
     Dates: start: 20110913, end: 20110919
  2. ALENDRONATE SODIUM [Concomitant]
     Indication: OSTEOPOROSIS
     Dosage: 10 MG
     Route: 048
  3. MODURETIC 5-50 [Concomitant]
     Indication: HYPERTENSION
     Dosage: 5/50 MG
     Route: 048

REACTIONS (2)
  - POST PROCEDURAL SEPSIS [None]
  - POST PROCEDURAL HAEMATOMA [None]
